FAERS Safety Report 19099275 (Version 1)
Quarter: 2021Q2

REPORT INFORMATION
  Report Type: Spontaneous
  Country: RU (occurrence: RU)
  Receive Date: 20210406
  Receipt Date: 20210406
  Transmission Date: 20210717
  Serious: Yes (Other)
  Sender: FDA-Public Use
  Company Number: RU-PFIZER INC-2021333732

PATIENT
  Age: 4 Year
  Sex: Male

DRUGS (2)
  1. CORTEF [Suspect]
     Active Substance: HYDROCORTISONE
     Indication: EPILEPSY
     Dosage: 4 TABS AT 7:00 AM, 3 TABS AT 10:00 AM, 2 TABS AT 13:00 PM EVERY DAY, SO 56 TABS PER WEEK
     Route: 048
     Dates: start: 20210218
  2. CORTEF [Suspect]
     Active Substance: HYDROCORTISONE
     Dosage: DECREASE A DOSE BY ONE TABLET A WEEK (55 TABLETS A WEEK, 54 TABLETS A WEEK AND SO
     Route: 048

REACTIONS (3)
  - Blood pressure increased [Unknown]
  - Oxygen saturation decreased [Unknown]
  - Off label use [Unknown]

NARRATIVE: CASE EVENT DATE: 20210218
